FAERS Safety Report 14741377 (Version 1)
Quarter: 2018Q2

REPORT INFORMATION
  Report Type: Spontaneous
  Country: US (occurrence: US)
  Receive Date: 20180410
  Receipt Date: 20180410
  Transmission Date: 20180711
  Serious: No
  Sender: FDA-Public Use
  Company Number: US-GALDERMA-US17006915

PATIENT
  Age: 44 Year
  Sex: Female

DRUGS (4)
  1. PROACTIV MD ADAPALENE ACNE TREATMENT [Suspect]
     Active Substance: ADAPALENE
     Indication: PRODUCT USED FOR UNKNOWN INDICATION
     Dosage: 0.1%
     Route: 061
     Dates: start: 20170713, end: 20170722
  2. PROACTIV SKIN PURIFYING MASK [Concomitant]
     Active Substance: SULFUR
     Route: 061
     Dates: start: 20170713, end: 20170722
  3. PROACTIV MD DEEP CLEANSING FACE WASH [Concomitant]
     Active Substance: COSMETICS
     Route: 061
     Dates: start: 20170713, end: 20170722
  4. SYNTHROID [Concomitant]
     Active Substance: LEVOTHYROXINE SODIUM

REACTIONS (2)
  - Erythema [Recovered/Resolved]
  - Skin fragility [Recovered/Resolved]

NARRATIVE: CASE EVENT DATE: 20170713
